FAERS Safety Report 5824080-1 (Version None)
Quarter: 2008Q3

REPORT INFORMATION
  Report Type: 
  Country: None (occurrence: None)
  Receive Date: 20080728
  Receipt Date: 20080722
  Transmission Date: 20090109
  Serious: Yes (Other)
  Sender: FDA-Public Use
  Company Number: US-BAYER-200822002NA

PATIENT
  Age: 33 Year
  Sex: Female

DRUGS (2)
  1. MIRENA [Suspect]
     Indication: DRUG USE FOR UNKNOWN INDICATION
     Route: 015
     Dates: start: 20071221, end: 20080303
  2. MICRONOR [Concomitant]
     Indication: CONTRACEPTION

REACTIONS (3)
  - IUCD COMPLICATION [None]
  - IUD MIGRATION [None]
  - UTERINE RUPTURE [None]
